FAERS Safety Report 13601538 (Version 2)
Quarter: 2017Q2

REPORT INFORMATION
  Report Type: Spontaneous
  Country: US (occurrence: US)
  Receive Date: 20170601
  Receipt Date: 20170627
  Transmission Date: 20170830
  Serious: No
  Sender: FDA-Public Use
  Company Number: US-GLAXOSMITHKLINE-US2017078825

PATIENT
  Sex: Female
  Weight: 99.77 kg

DRUGS (1)
  1. INCRUSE ELLIPTA [Suspect]
     Active Substance: UMECLIDINIUM BROMIDE
     Indication: CHRONIC OBSTRUCTIVE PULMONARY DISEASE
     Dosage: UNK
     Route: 055
     Dates: start: 20170510, end: 20170517

REACTIONS (5)
  - Respiratory tract inflammation [Recovered/Resolved]
  - Lactose intolerance [Unknown]
  - Circumstance or information capable of leading to medication error [Unknown]
  - Dyspnoea [Recovering/Resolving]
  - Condition aggravated [Recovering/Resolving]
